FAERS Safety Report 4812186-5 (Version None)
Quarter: 2005Q4

REPORT INFORMATION
  Report Type: 
  Country: None (occurrence: None)
  Receive Date: 20051026
  Receipt Date: 20051007
  Transmission Date: 20060501
  Serious: Yes (Other)
  Sender: FDA-Public Use
  Company Number: USA050496130

PATIENT
  Age: 50 Year
  Sex: Female
  Weight: 105 kg

DRUGS (4)
  1. CYMBALTA [Suspect]
     Indication: MAJOR DEPRESSION
     Dosage: 60 MG DAY
     Dates: start: 20050210
  2. LEVOTHYROXINE [Concomitant]
  3. KLONOPIN [Concomitant]
  4. LAMICTAL [Concomitant]

REACTIONS (5)
  - ANOXIA [None]
  - OVARIAN OPERATION [None]
  - POST PROCEDURAL COMPLICATION [None]
  - RESPIRATORY ARREST [None]
  - SYNCOPE [None]
